FAERS Safety Report 20432328 (Version 1)
Quarter: 2022Q1

REPORT INFORMATION
  Report Type: Spontaneous
  Country: US (occurrence: None)
  Receive Date: 20220204
  Receipt Date: 20220204
  Transmission Date: 20220424
  Serious: No
  Sender: FDA-Public Use
  Company Number: None

PATIENT
  Age: 75 Year
  Sex: Male
  Weight: 70.2 kg

DRUGS (5)
  1. ABIRATERONE [Suspect]
     Active Substance: ABIRATERONE
     Indication: Prostate cancer
     Dosage: FREQUENCY : DAILY;?
     Route: 048
     Dates: start: 20210402
  2. CASODEX [Concomitant]
     Active Substance: BICALUTAMIDE
  3. ELIGARD [Concomitant]
     Active Substance: LEUPROLIDE ACETATE
  4. PHENOBARBITAL [Concomitant]
     Active Substance: PHENOBARBITAL
  5. PHENYTOIN [Concomitant]
     Active Substance: PHENYTOIN

REACTIONS (1)
  - COVID-19 [None]

NARRATIVE: CASE EVENT DATE: 20220106
